FAERS Safety Report 9295525 (Version 3)
Quarter: 2013Q3

REPORT INFORMATION
  Report Type: Spontaneous
  Country: IT (occurrence: IT)
  Receive Date: 20130517
  Receipt Date: 20130821
  Transmission Date: 20140515
  Serious: Yes (Hospitalization)
  Sender: FDA-Public Use
  Company Number: IT-009507513-1305ITA010268

PATIENT
  Age: 69 Year
  Sex: Male

DRUGS (4)
  1. REBETOL [Suspect]
     Indication: HEPATITIS C ANTIBODY POSITIVE
     Dosage: TOTAL DAILY DOSE :1000 MILLIGRAMS
     Route: 048
     Dates: start: 20121025
  2. PEGASYS [Suspect]
     Indication: HEPATITIS C ANTIBODY POSITIVE
     Dosage: 180 MICROGRAM, QW
     Route: 058
     Dates: start: 20121025
  3. DEURSIL [Concomitant]
     Dosage: 1 DF, UNK
     Route: 048
  4. VALPRESSION [Concomitant]
     Dosage: 20 MG, UNK
     Route: 048
     Dates: start: 20050601

REACTIONS (3)
  - Lobar pneumonia [Recovering/Resolving]
  - Urinary tract infection [Recovering/Resolving]
  - Pyrexia [Recovering/Resolving]
